FAERS Safety Report 4720221-8 (Version None)
Quarter: 2005Q3

REPORT INFORMATION
  Report Type: 
  Country: None (occurrence: None)
  Receive Date: 20050719
  Receipt Date: 20050407
  Transmission Date: 20060218
  Serious: Yes (Hospitalization)
  Sender: FDA-Public Use
  Company Number: TR 2005 0002

PATIENT
  Age: 22 Year
  Sex: Male

DRUGS (1)
  1. OXILAN OXILAN (UNKNOWN) -LOXILAN [Suspect]
     Indication: ANGIOGRAM
     Dosage: 150ML PER DAY INTRA-ARTERIAL
     Route: 013
     Dates: start: 20050621

REACTIONS (4)
  - DIZZINESS [None]
  - PYREXIA [None]
  - STOMACH DISCOMFORT [None]
  - TREMOR [None]
